FAERS Safety Report 21023867 (Version 2)
Quarter: 2023Q1

REPORT INFORMATION
  Report Type: Report from Study
  Country: FR (occurrence: FR)
  Receive Date: 20220629
  Receipt Date: 20230207
  Transmission Date: 20230417
  Serious: Yes (Life-Threatening)
  Sender: FDA-Public Use
  Company Number: FR-NOVARTISPH-NVSC2022FR147359

PATIENT
  Age: 56 Year
  Sex: Male
  Weight: 109 kg

DRUGS (3)
  1. CAPMATINIB [Suspect]
     Active Substance: CAPMATINIB
     Indication: Oesophageal cancer metastatic
     Dosage: 800 MG
     Route: 048
     Dates: start: 20220511
  2. SPARTALIZUMAB [Suspect]
     Active Substance: SPARTALIZUMAB
     Indication: Oesophageal cancer metastatic
     Dosage: 300 MG
     Route: 042
     Dates: start: 20220511
  3. LANSOPRAZOLE [Concomitant]
     Active Substance: LANSOPRAZOLE
     Indication: Gastrooesophageal reflux disease
     Dosage: 30 MG
     Route: 048
     Dates: start: 20220519

REACTIONS (1)
  - Immune-mediated hepatitis [Recovered/Resolved]

NARRATIVE: CASE EVENT DATE: 20220621
